FAERS Safety Report 17045819 (Version 1)
Quarter: 2019Q4

REPORT INFORMATION
  Report Type: Spontaneous
  Country: US (occurrence: US)
  Receive Date: 20191118
  Receipt Date: 20191118
  Transmission Date: 20200122
  Serious: Yes (Death)
  Sender: FDA-Public Use
  Company Number: US-SUN PHARMACEUTICAL INDUSTRIES LTD-2019R1-227701

PATIENT
  Age: 14 Year
  Sex: Female

DRUGS (1)
  1. DEXMEDETOMIDINE. [Suspect]
     Active Substance: DEXMEDETOMIDINE
     Indication: PROCEDURAL VOMITING
     Dosage: AT VARYING DOSES (RANGE OF 0.1-0.38 MCG/KG/HOUR) FOR NEARLY THREE YEARS
     Route: 065

REACTIONS (1)
  - Death [Fatal]
